FAERS Safety Report 6481337-1 (Version None)
Quarter: 2009Q4

REPORT INFORMATION
  Report Type: 
  Country: None (occurrence: None)
  Receive Date: 20091208
  Receipt Date: 20091130
  Transmission Date: 20100525
  Serious: Yes (Disabling)
  Sender: FDA-Public Use
  Company Number: B0600957A

PATIENT
  Sex: Male
  Weight: 48.8 kg

DRUGS (2)
  1. RELENZA [Suspect]
     Indication: INFLUENZA
     Dosage: 10MG TWICE PER DAY
     Route: 055
     Dates: start: 20091026
  2. CALONAL [Concomitant]
     Indication: ANTIPYRESIS
     Route: 048
     Dates: start: 20091026

REACTIONS (4)
  - ABNORMAL BEHAVIOUR [None]
  - CHEST PAIN [None]
  - DELIRIUM [None]
  - SLEEP TERROR [None]
